FAERS Safety Report 5304505-0 (Version None)
Quarter: 2007Q2

REPORT INFORMATION
  Report Type: 
  Country: None (occurrence: None)
  Receive Date: 20070419
  Receipt Date: 20070419
  Transmission Date: 20071010
  Serious: No
  Sender: FDA-Public Use
  Company Number: None

PATIENT
  Age: 53 Year
  Sex: Female
  Weight: 68.0396 kg

DRUGS (1)
  1. SUBOXONE [Suspect]
     Indication: BACK PAIN
     Dosage: 2 3 TIMES A DAY PO
     Route: 048
     Dates: start: 20070416, end: 20070418

REACTIONS (4)
  - FATIGUE [None]
  - FEELING ABNORMAL [None]
  - STOMACH DISCOMFORT [None]
  - VISUAL DISTURBANCE [None]
